FAERS Safety Report 10697691 (Version 6)
Quarter: 2019Q1

REPORT INFORMATION
  Report Type: Spontaneous
  Country: FR (occurrence: FR)
  Receive Date: 20150108
  Receipt Date: 20190320
  Transmission Date: 20190417
  Serious: Yes (Hospitalization, Other)
  Sender: FDA-Public Use
  Company Number: FR-ASTRAZENECA-2015SE00467

PATIENT
  Age: 9229 Day
  Sex: Female
  Weight: 74 kg

DRUGS (14)
  1. SOLU-MEDROL [Suspect]
     Active Substance: METHYLPREDNISOLONE SODIUM SUCCINATE
     Indication: APLASTIC ANAEMIA
     Route: 065
     Dates: start: 20140812, end: 20140815
  2. POLARAMINE [Concomitant]
     Active Substance: DEXCHLORPHENIRAMINE MALEATE
     Indication: PREMEDICATION
     Dosage: 1 DF VIAL
  3. SOLU-MEDROL [Suspect]
     Active Substance: METHYLPREDNISOLONE SODIUM SUCCINATE
     Indication: PREMEDICATION
     Route: 065
     Dates: start: 20140812, end: 20140815
  4. CICLOSPORIN [Suspect]
     Active Substance: CYCLOSPORINE
     Indication: PREMEDICATION
     Dosage: 5 MG/KG/DAY
     Route: 042
     Dates: start: 20140812
  5. FILGRASTIM [Suspect]
     Active Substance: FILGRASTIM
     Route: 065
     Dates: end: 20140904
  6. INEXIUM [Suspect]
     Active Substance: ESOMEPRAZOLE
     Indication: ABDOMINAL PAIN UPPER
     Route: 048
     Dates: start: 20140801, end: 20140825
  7. SOLU-MEDROL [Suspect]
     Active Substance: METHYLPREDNISOLONE SODIUM SUCCINATE
     Indication: APLASTIC ANAEMIA
     Route: 065
  8. ATGAM [Suspect]
     Active Substance: EQUINE THYMOCYTE IMMUNE GLOBULIN
     Indication: BONE MARROW FAILURE
     Route: 042
     Dates: start: 20140812, end: 20140815
  9. SOLU-MEDROL [Suspect]
     Active Substance: METHYLPREDNISOLONE SODIUM SUCCINATE
     Indication: BONE MARROW FAILURE
     Route: 065
     Dates: start: 20140812, end: 20140815
  10. PARACETAMOL [Concomitant]
     Active Substance: ACETAMINOPHEN
     Indication: PREMEDICATION
     Dosage: 1.0G UNKNOWN
  11. CICLOSPORIN [Suspect]
     Active Substance: CYCLOSPORINE
     Indication: APLASTIC ANAEMIA
     Dosage: 5 MG/KG/DAY
     Route: 042
     Dates: start: 20140812
  12. SOLU-MEDROL [Suspect]
     Active Substance: METHYLPREDNISOLONE SODIUM SUCCINATE
     Indication: PREMEDICATION
     Route: 065
  13. SOLU-MEDROL [Suspect]
     Active Substance: METHYLPREDNISOLONE SODIUM SUCCINATE
     Indication: BONE MARROW FAILURE
     Route: 065
  14. CICLOSPORIN [Suspect]
     Active Substance: CYCLOSPORINE
     Indication: BONE MARROW FAILURE
     Dosage: 5 MG/KG/DAY
     Route: 042
     Dates: start: 20140812

REACTIONS (16)
  - Sepsis [Recovering/Resolving]
  - Acute kidney injury [Recovered/Resolved]
  - Mucosal inflammation [Unknown]
  - Stomatitis [Unknown]
  - Capillary leak syndrome [Recovered/Resolved]
  - Rash maculo-papular [Unknown]
  - Septic shock [Recovered/Resolved]
  - Serum sickness [Recovered/Resolved]
  - Generalised oedema [Recovered/Resolved]
  - Oesophagitis [Unknown]
  - Pancytopenia [Not Recovered/Not Resolved]
  - Pyrexia [Recovered/Resolved]
  - Abdominal pain upper [Recovering/Resolving]
  - Cardiac failure congestive [Recovered/Resolved]
  - Oral fungal infection [Unknown]
  - Steroid diabetes [Unknown]

NARRATIVE: CASE EVENT DATE: 201408
